FAERS Safety Report 7542843-1 (Version None)
Quarter: 2011Q2

REPORT INFORMATION
  Report Type: 
  Country: None (occurrence: None)
  Receive Date: 20110613
  Receipt Date: 20110606
  Transmission Date: 20111010
  Serious: Yes (Death, Other)
  Sender: FDA-Public Use
  Company Number: US-GENZYME-FLUD-1001208

PATIENT
  Sex: Female

DRUGS (7)
  1. MELPHALAN HYDROCHLORIDE [Suspect]
     Indication: STEM CELL TRANSPLANT
  2. TACROLIMUS [Concomitant]
     Indication: PROPHYLAXIS AGAINST GRAFT VERSUS HOST DISEASE
  3. MELPHALAN HYDROCHLORIDE [Suspect]
     Indication: MYELODYSPLASTIC SYNDROME
     Dosage: UNK
     Route: 065
     Dates: start: 20060101
  4. CAMPATH [Suspect]
     Indication: STEM CELL TRANSPLANT
  5. FLUDARA [Suspect]
     Indication: STEM CELL TRANSPLANT
  6. FLUDARA [Suspect]
     Indication: MYELODYSPLASTIC SYNDROME
     Dosage: UNK
     Route: 065
     Dates: start: 20060101
  7. CAMPATH [Suspect]
     Indication: MYELODYSPLASTIC SYNDROME
     Dosage: UNK
     Route: 065
     Dates: start: 20060101

REACTIONS (6)
  - DEATH [None]
  - FUNGAL INFECTION [None]
  - CYTOMEGALOVIRUS VIRAEMIA [None]
  - ACUTE MYELOID LEUKAEMIA [None]
  - CHRONIC GRAFT VERSUS HOST DISEASE [None]
  - PANCYTOPENIA [None]
